FAERS Safety Report 15203720 (Version 6)
Quarter: 2018Q4

REPORT INFORMATION
  Report Type: Spontaneous
  Country: US (occurrence: US)
  Receive Date: 20180726
  Receipt Date: 20181226
  Transmission Date: 20190204
  Serious: Yes (Other)
  Sender: FDA-Public Use
  Company Number: US-PFIZER INC-2018299999

PATIENT
  Age: 71 Year
  Sex: Male
  Weight: 61 kg

DRUGS (3)
  1. LYRICA [Suspect]
     Active Substance: PREGABALIN
     Indication: PAIN IN EXTREMITY
     Dosage: 200 MG, 4X/DAY (1 ORANGE CAPSULE FOUR TIMES A DAY)
     Route: 048
     Dates: start: 20181130
  2. TOPIRAMATE. [Concomitant]
     Active Substance: TOPIRAMATE
     Indication: SCIATICA
     Dosage: 25 MG, 2X/DAY (1 TABLET BY MORNING AND 1 TABLET AT NIGHT)
     Route: 048
  3. LYRICA [Suspect]
     Active Substance: PREGABALIN
     Indication: SCIATICA
     Dosage: 100 MG, 3X/DAY

REACTIONS (3)
  - Prescribed overdose [Unknown]
  - Neoplasm malignant [Not Recovered/Not Resolved]
  - Weight decreased [Unknown]

NARRATIVE: CASE EVENT DATE: 20181130
